FAERS Safety Report 4966495-X (Version None)
Quarter: 2006Q2

REPORT INFORMATION
  Report Type: 
  Country: None (occurrence: None)
  Receive Date: 20060407
  Receipt Date: 20051114
  Transmission Date: 20061013
  Serious: Yes (Hospitalization, Other)
  Sender: FDA-Public Use
  Company Number: US-BRISTOL-MYERS SQUIBB COMPANY-13181573

PATIENT
  Age: 79 Year
  Sex: Female

DRUGS (3)
  1. CEFEPIME [Suspect]
     Indication: BACTERIAL CULTURE POSITIVE
  2. CEFEPIME [Suspect]
     Indication: URINARY TRACT INFECTION
  3. FLUCONAZOLE [Concomitant]
     Indication: FUNGUS URINE TEST POSITIVE

REACTIONS (1)
  - STATUS EPILEPTICUS [None]
